FAERS Safety Report 6242367-8 (Version None)
Quarter: 2009Q2

REPORT INFORMATION
  Report Type: 
  Country: None (occurrence: None)
  Receive Date: 20090624
  Receipt Date: 20090615
  Transmission Date: 20091009
  Serious: Yes (Hospitalization)
  Sender: FDA-Public Use
  Company Number: US-ELI_LILLY_AND_COMPANY-US200905002121

PATIENT
  Sex: Female
  Weight: 64.399 kg

DRUGS (12)
  1. BYETTA [Suspect]
     Indication: TYPE 2 DIABETES MELLITUS
     Dosage: 5 UG, 2/D
     Route: 058
     Dates: start: 20080101, end: 20080101
  2. BYETTA [Suspect]
     Dosage: 10 UG, 2/D
     Route: 058
     Dates: start: 20080101
  3. HYDROCODONE BITARTRATE [Concomitant]
     Indication: PAIN
     Dosage: UNK, OTHER
  4. AMLODIPINE [Concomitant]
     Dosage: 5 UNK, UNKNOWN
  5. DIOVAN /SCH/ [Concomitant]
     Indication: HYPERTENSION
     Dosage: 160 MG, UNKNOWN
  6. AMITRIPTYLINE HCL [Concomitant]
     Indication: NEUROPATHY PERIPHERAL
     Dosage: 50 MG, UNKNOWN
  7. GLIPIZIDE [Concomitant]
     Indication: TYPE 2 DIABETES MELLITUS
     Dosage: 10 MG, 2/M
     Route: 048
  8. FLOVENT [Concomitant]
     Indication: EMPHYSEMA
     Dosage: UNK, UNKNOWN
  9. DIGOXIN [Concomitant]
     Dosage: 0.25 MG, UNK
  10. ASPIRIN [Concomitant]
     Dosage: 81 MG, UNK
  11. TYLENOL (CAPLET) [Concomitant]
     Dosage: UNK, UNKNOWN
  12. LOPID [Concomitant]
     Dosage: 600 MG, 2/D
     Route: 048

REACTIONS (16)
  - ABASIA [None]
  - BLOOD POTASSIUM DECREASED [None]
  - DIARRHOEA [None]
  - FALL [None]
  - HYPOVOLAEMIA [None]
  - JOINT CREPITATION [None]
  - JOINT SPRAIN [None]
  - MEMORY IMPAIRMENT [None]
  - NEUROPATHY PERIPHERAL [None]
  - OEDEMA PERIPHERAL [None]
  - ORTHOSTATIC HYPOTENSION [None]
  - PAIN IN EXTREMITY [None]
  - PERIPHERAL COLDNESS [None]
  - ROTATOR CUFF SYNDROME [None]
  - STRESS [None]
  - SYNCOPE [None]
